FAERS Safety Report 7214163-6 (Version None)
Quarter: 2010Q4

REPORT INFORMATION
  Report Type: 
  Country: None (occurrence: None)
  Receive Date: 20101126
  Receipt Date: 20100115
  Transmission Date: 20110411
  Serious: Yes (Other)
  Sender: FDA-Public Use
  Company Number: WAES 1001USA01815

PATIENT
  Age: 59 Year
  Sex: Female

DRUGS (6)
  1. FOSAMAX [Suspect]
     Indication: OSTEOPOROSIS
     Dosage: 70 MG/WKY/PO ; 70 MG/WKY/PO
     Route: 048
     Dates: start: 20030301, end: 20050909
  2. FOSAMAX [Suspect]
     Indication: OSTEOPOROSIS
     Dosage: 70 MG/WKY/PO ; 70 MG/WKY/PO
     Route: 048
     Dates: start: 19900101, end: 20051101
  3. FOSAMAX [Suspect]
     Indication: OSTEOPOROSIS
     Dosage: DAILY/PO ; PO
     Route: 048
     Dates: start: 19980101, end: 20050901
  4. FOSAMAX [Suspect]
     Indication: OSTEOPOROSIS
     Dosage: DAILY/PO ; PO
     Route: 048
     Dates: start: 19930101
  5. EFFEXOR [Concomitant]
  6. WELLBUTRIN [Concomitant]

REACTIONS (12)
  - ANXIETY [None]
  - ARTHRITIS [None]
  - BLOOD CHOLESTEROL INCREASED [None]
  - GASTROINTESTINAL DISORDER [None]
  - HYPERTENSION [None]
  - IMPAIRED HEALING [None]
  - OESOPHAGEAL DISORDER [None]
  - ORAL TORUS [None]
  - OSTEONECROSIS [None]
  - SKIN LACERATION [None]
  - TOOTH DISORDER [None]
  - TOOTH FRACTURE [None]
